FAERS Safety Report 25716021 (Version 1)
Quarter: 2025Q3

REPORT INFORMATION
  Report Type: Spontaneous
  Country: CA (occurrence: CA)
  Receive Date: 20250822
  Receipt Date: 20250822
  Transmission Date: 20251020
  Serious: Yes (Hospitalization, Other)
  Sender: RANBAXY
  Company Number: CA-SUN PHARMACEUTICAL INDUSTRIES INC-2025R1-523969

PATIENT
  Age: 63 Year
  Sex: Female

DRUGS (6)
  1. AMITRIPTYLINE [Suspect]
     Active Substance: AMITRIPTYLINE
     Indication: Pain management
     Route: 061
  2. METHADONE [Suspect]
     Active Substance: METHADONE HYDROCHLORIDE
     Indication: Pain management
     Route: 061
  3. HYDROMORPHONE [Suspect]
     Active Substance: HYDROMORPHONE
     Indication: Pain management
     Route: 065
  4. HYDROMORPHONE [Suspect]
     Active Substance: HYDROMORPHONE
     Indication: Pain management
     Route: 048
  5. KETAMINE [Suspect]
     Active Substance: KETAMINE
     Indication: Pain management
     Route: 061
  6. SUFENTANIL [Suspect]
     Active Substance: SUFENTANIL
     Indication: Pain management
     Route: 065

REACTIONS (3)
  - Hallucination [Recovering/Resolving]
  - Confusional state [Recovering/Resolving]
  - Drug ineffective [Unknown]
